FAERS Safety Report 25045953 (Version 2)
Quarter: 2025Q1

REPORT INFORMATION
  Report Type: Spontaneous
  Country: FR (occurrence: FR)
  Receive Date: 20250306
  Receipt Date: 20250327
  Transmission Date: 20250408
  Serious: Yes (Other)
  Sender: ALEXION PHARMACEUTICALS
  Company Number: FR-SA-2025SA063715

PATIENT
  Age: 5 Month
  Weight: 8.1 kg

DRUGS (1)
  1. BEYFORTUS [Suspect]
     Active Substance: NIRSEVIMAB-ALIP
     Dosage: 50 MILLIGRAM, QD

REACTIONS (3)
  - Respiratory syncytial virus bronchiolitis [Unknown]
  - Cough [Unknown]
  - Lung disorder [Unknown]
